FAERS Safety Report 9994776 (Version 1)
Quarter: 2014Q1

REPORT INFORMATION
  Report Type: Spontaneous
  Country: US (occurrence: None)
  Receive Date: 20140306
  Receipt Date: 20140306
  Transmission Date: 20141002
  Serious: Yes (Other)
  Sender: FDA-Public Use
  Company Number: SYM-2014-18283

PATIENT
  Age: 14 Year
  Sex: Male

DRUGS (5)
  1. XENAZINE [Suspect]
     Indication: TOURETTE^S DISORDER
     Route: 048
     Dates: start: 20140205, end: 20140212
  2. AMANTADINE [Concomitant]
  3. FLUPHENAZINE (FLUPHENAZINE) [Concomitant]
  4. DEPAKOTE (VALPROATE SEMISODIUM) (VALPROATE SEMISODIUM) [Concomitant]
  5. CHLORAL HYDRATE (CHLORAL HYDRATE) [Concomitant]

REACTIONS (13)
  - Palpitations [None]
  - Depressed mood [None]
  - Tic [None]
  - Condition aggravated [None]
  - Educational problem [None]
  - Tremor [None]
  - Dizziness [None]
  - Drooling [None]
  - Feeling abnormal [None]
  - Agitation [None]
  - Crying [None]
  - Emotional disorder [None]
  - Suicidal ideation [None]
